FAERS Safety Report 5854293-4 (Version None)
Quarter: 2008Q3

REPORT INFORMATION
  Report Type: 
  Country: None (occurrence: None)
  Receive Date: 20080822
  Receipt Date: 20080812
  Transmission Date: 20090109
  Serious: Yes (Other)
  Sender: FDA-Public Use
  Company Number: DK-PFIZER INC-2007080343

PATIENT
  Sex: Male

DRUGS (1)
  1. ZITHROMAX [Suspect]
     Indication: CHLAMYDIAL INFECTION
     Dates: start: 20070827, end: 20070827

REACTIONS (2)
  - DRUG EXPOSURE DURING PREGNANCY [None]
  - MENTAL RETARDATION [None]
